FAERS Safety Report 7293260 (Version 2)
Quarter: 2019Q1

REPORT INFORMATION
  Report Type: Spontaneous
  Country: GB (occurrence: GB)
  Receive Date: 20100224
  Receipt Date: 20190225
  Transmission Date: 20190418
  Serious: Yes (Other)
  Sender: FDA-Public Use
  Company Number: GB-PFIZER INC-2010019796

PATIENT
  Age: 39 Year
  Sex: Male
  Weight: 70 kg

DRUGS (2)
  1. CHAMPIX [Suspect]
     Active Substance: VARENICLINE TARTRATE
     Indication: NICOTINE DEPENDENCE
     Dosage: 1 MG, 2X/DAY
     Route: 048
     Dates: start: 200812, end: 200909
  2. NAPROXEN. [Concomitant]
     Active Substance: NAPROXEN
     Indication: BACK PAIN
     Dosage: 500 MG, 2X/DAY
     Route: 048
     Dates: start: 2007

REACTIONS (3)
  - Skin exfoliation [Recovered/Resolved]
  - Hypoaesthesia [Recovered/Resolved]
  - Cyanosis [Recovered/Resolved]

NARRATIVE: CASE EVENT DATE: 200903
